FAERS Safety Report 16727181 (Version 2)
Quarter: 2022Q3

REPORT INFORMATION
  Report Type: Spontaneous
  Country: US (occurrence: None)
  Receive Date: 20190822
  Receipt Date: 20220807
  Transmission Date: 20221027
  Serious: Yes (Hospitalization)
  Sender: FDA-Public Use
  Company Number: US-ROCHE-2378577

PATIENT
  Age: 57 Year
  Sex: Female

DRUGS (7)
  1. ACTEMRA [Suspect]
     Active Substance: TOCILIZUMAB
     Indication: Hypertension
     Dosage: EVERY 7 DAYS ONGOING: YES, STRENGTH: 162 MG/0.9 M, EXPIRY DATE: 31/JUL/2020
     Route: 058
     Dates: start: 20180525
  2. ACTEMRA [Suspect]
     Active Substance: TOCILIZUMAB
  3. ACTEMRA [Suspect]
     Active Substance: TOCILIZUMAB
  4. ACTEMRA [Suspect]
     Active Substance: TOCILIZUMAB
     Indication: Rheumatoid arthritis
  5. ACTEMRA [Suspect]
     Active Substance: TOCILIZUMAB
  6. ACTEMRA [Suspect]
     Active Substance: TOCILIZUMAB
  7. LORATADINE [Concomitant]
     Active Substance: LORATADINE

REACTIONS (4)
  - Chest pain [Unknown]
  - Arthralgia [Unknown]
  - Joint swelling [Unknown]
  - Stress [Unknown]

NARRATIVE: CASE EVENT DATE: 20190717
